FAERS Safety Report 20280355 (Version 4)
Quarter: 2022Q1

REPORT INFORMATION
  Report Type: Report from Study
  Country: FR (occurrence: FR)
  Receive Date: 20220103
  Receipt Date: 20220127
  Transmission Date: 20220423
  Serious: Yes (Hospitalization)
  Sender: FDA-Public Use
  Company Number: FR-GLAXOSMITHKLINE-FR2020GSK041479

PATIENT
  Age: 61 Year
  Sex: Female
  Weight: 64 kg

DRUGS (13)
  1. DOSTARLIMAB [Suspect]
     Active Substance: DOSTARLIMAB
     Indication: Ovarian cancer
     Dosage: 500 MG (EVERY 21 DAYS)
     Dates: start: 20191212, end: 20191212
  2. DOSTARLIMAB [Suspect]
     Active Substance: DOSTARLIMAB
     Dosage: 500 MG Z (EVERY 21 DAYS)
     Dates: start: 20200102, end: 20200102
  3. DOSTARLIMAB [Suspect]
     Active Substance: DOSTARLIMAB
     Dosage: UNK
     Dates: start: 20200123, end: 20200123
  4. CARBOPLATIN [Suspect]
     Active Substance: CARBOPLATIN
     Indication: Ovarian cancer
     Dosage: 5 AUC
     Route: 042
     Dates: start: 20191114, end: 20191114
  5. CARBOPLATIN [Suspect]
     Active Substance: CARBOPLATIN
     Dosage: 560 AUC
     Route: 042
     Dates: start: 20200102, end: 20200102
  6. CARBOPLATIN [Suspect]
     Active Substance: CARBOPLATIN
     Dosage: 560 AUC
     Route: 042
     Dates: start: 20200213, end: 20200213
  7. PACLITAXEL [Suspect]
     Active Substance: PACLITAXEL
     Indication: Ovarian cancer
     Dosage: 288 MG
     Route: 042
     Dates: start: 20191114, end: 20191114
  8. PACLITAXEL [Suspect]
     Active Substance: PACLITAXEL
     Dosage: 288 MG
     Route: 042
     Dates: start: 20200102, end: 20200102
  9. PACLITAXEL [Suspect]
     Active Substance: PACLITAXEL
     Dosage: 288 MG
     Route: 042
     Dates: start: 20200213, end: 20200213
  10. BEVACIZUMAB [Suspect]
     Active Substance: BEVACIZUMAB
     Indication: Ovarian cancer
     Dosage: UNK
     Route: 042
  11. RETACRIT [Concomitant]
     Active Substance: EPOETIN ALFA-EPBX
     Dosage: 30000 IU, WE
     Route: 058
     Dates: start: 20200102, end: 20200213
  12. CISPLATIN [Concomitant]
     Active Substance: CISPLATIN
  13. DOCETAXEL [Concomitant]
     Active Substance: DOCETAXEL

REACTIONS (3)
  - Vasculitis gastrointestinal [Recovering/Resolving]
  - General physical health deterioration [Recovered/Resolved]
  - General physical health deterioration [Recovered/Resolved]

NARRATIVE: CASE EVENT DATE: 20200123
